FAERS Safety Report 5339132-2 (Version None)
Quarter: 2007Q2

REPORT INFORMATION
  Report Type: 
  Country: None (occurrence: None)
  Receive Date: 20070530
  Receipt Date: 20070521
  Transmission Date: 20071010
  Serious: Yes (Death)
  Sender: FDA-Public Use
  Company Number: FR-PFIZER INC-2007041197

PATIENT
  Age: 33 Year
  Sex: Female

DRUGS (2)
  1. XANAX [Suspect]
     Route: 048
  2. CODOLIPRANE [Suspect]
     Route: 048

REACTIONS (1)
  - DRUG DEPENDENCE [None]
